FAERS Safety Report 9171607 (Version 1)
Quarter: 2013Q1

REPORT INFORMATION
  Report Type: Spontaneous
  Country: US (occurrence: US)
  Receive Date: 20130319
  Receipt Date: 20130319
  Transmission Date: 20140127
  Serious: Yes (Other)
  Sender: FDA-Public Use
  Company Number: US-ASTRAZENECA-2013SE16377

PATIENT
  Age: 75 Year
  Sex: Male
  Weight: 74.8 kg

DRUGS (1)
  1. NEXIUM [Suspect]
     Indication: GASTROOESOPHAGEAL REFLUX DISEASE
     Route: 048
     Dates: start: 201206

REACTIONS (4)
  - Road traffic accident [Unknown]
  - Joint dislocation [Recovering/Resolving]
  - Weight decreased [Not Recovered/Not Resolved]
  - Contusion [Recovering/Resolving]
